FAERS Safety Report 11865215 (Version 1)
Quarter: 2015Q4

REPORT INFORMATION
  Report Type: Spontaneous
  Country: AT (occurrence: AT)
  Receive Date: 20151223
  Receipt Date: 20151223
  Transmission Date: 20160305
  Serious: Yes (Other)
  Sender: FDA-Public Use
  Company Number: AT-GLAXOSMITHKLINE-AT2015GSK180278

PATIENT
  Age: 30 Year
  Sex: Female

DRUGS (2)
  1. HYPERICUM PERFORATUM EXTRACT [Concomitant]
     Active Substance: HYPERICUM PERFORATUM EXTRACT
     Indication: DEPRESSION
     Route: 048
  2. LAMICTAL [Suspect]
     Active Substance: LAMOTRIGINE
     Indication: EPILEPSY
     Dosage: 600 MG, 1D
     Dates: start: 1995

REACTIONS (1)
  - Seizure [Recovered/Resolved]

NARRATIVE: CASE EVENT DATE: 201511
